FAERS Safety Report 24243905 (Version 2)
Quarter: 2024Q3

REPORT INFORMATION
  Report Type: Spontaneous
  Country: US (occurrence: US)
  Receive Date: 20240823
  Receipt Date: 20240913
  Transmission Date: 20241017
  Serious: Yes (Disabling, Other)
  Sender: AMGEN
  Company Number: US-AMGEN-USASP2024166006

PATIENT
  Age: 52 Year
  Sex: Male
  Weight: 83.2 kg

DRUGS (17)
  1. TEPEZZA [Suspect]
     Active Substance: TEPROTUMUMAB-TRBW
     Indication: Endocrine ophthalmopathy
     Dosage: 910 MILLIGRAM, Q3WK (FIRST INFUSION)
     Route: 042
     Dates: start: 20230119
  2. TEPEZZA [Suspect]
     Active Substance: TEPROTUMUMAB-TRBW
     Indication: Graves^ disease
     Dosage: 1860 MILLIGRAM, Q3WK
     Route: 042
     Dates: start: 20230221
  3. TEPEZZA [Suspect]
     Active Substance: TEPROTUMUMAB-TRBW
     Dosage: 1820 MILLIGRAM, Q3WK
     Route: 042
     Dates: start: 20230314
  4. TEPEZZA [Suspect]
     Active Substance: TEPROTUMUMAB-TRBW
     Dosage: 1760 MILLIGRAM, Q3WK
     Route: 042
     Dates: start: 20230404
  5. TEPEZZA [Suspect]
     Active Substance: TEPROTUMUMAB-TRBW
     Dosage: 1664 MILLIGRAM, Q3WK (FOURTH INFUSION))
     Route: 042
     Dates: start: 20230426
  6. TEPEZZA [Suspect]
     Active Substance: TEPROTUMUMAB-TRBW
     Dosage: 1664 MILLIGRAM, Q3WK (FIFTH INFUSION)
     Route: 042
     Dates: start: 20230517
  7. TEPEZZA [Suspect]
     Active Substance: TEPROTUMUMAB-TRBW
     Dosage: 1664 MILLIGRAM, Q3WK
     Route: 042
     Dates: start: 20230615
  8. TEPEZZA [Suspect]
     Active Substance: TEPROTUMUMAB-TRBW
     Dosage: 1664 MILLIGRAM, Q3WK
     Route: 042
     Dates: start: 20230705
  9. TEPEZZA [Suspect]
     Active Substance: TEPROTUMUMAB-TRBW
     Dosage: 1664 MILLIGRAM, Q3WK
     Route: 042
     Dates: start: 20230801
  10. TEPEZZA [Suspect]
     Active Substance: TEPROTUMUMAB-TRBW
     Dosage: 1664 MILLIGRAM, Q3WK
     Route: 042
     Dates: start: 20230821
  11. CORTISPORIN [Concomitant]
     Active Substance: BACITRACIN ZINC\HYDROCORTISONE\NEOMYCIN SULFATE\POLYMYXIN B SULFATE
     Indication: Ear haemorrhage
     Dosage: UNK UNK, TID (TAKE FIVE DROPS IN RIGHT EARTID)
     Route: 001
  12. CORTISPORIN [Concomitant]
     Active Substance: BACITRACIN ZINC\HYDROCORTISONE\NEOMYCIN SULFATE\POLYMYXIN B SULFATE
     Indication: Otorrhoea
  13. CEFDINIR [Concomitant]
     Active Substance: CEFDINIR
     Dosage: 300 MILLIGRAM, BID
     Route: 048
  14. SODIUM CHLORIDE [Concomitant]
     Active Substance: SODIUM CHLORIDE
     Dosage: UNK (STRENGTH 100 ML)
     Route: 042
  15. SODIUM CHLORIDE [Concomitant]
     Active Substance: SODIUM CHLORIDE
     Dosage: UNK (STRENGTH 250 ML)
     Route: 042
  16. SODIUM CHLORIDE [Concomitant]
     Active Substance: SODIUM CHLORIDE
     Dosage: UNK (STRENGTH 500 ML)
     Route: 042
  17. SODIUM CHLORIDE [Concomitant]
     Active Substance: SODIUM CHLORIDE
     Dosage: 100 MILLILITER
     Route: 042

REACTIONS (19)
  - Deafness neurosensory [Not Recovered/Not Resolved]
  - Endocrine ophthalmopathy [Unknown]
  - Graves^ disease [Unknown]
  - Pain [Unknown]
  - Emotional distress [Unknown]
  - Anxiety [Unknown]
  - Product use complaint [Unknown]
  - Nasal turbinate hypertrophy [Unknown]
  - Nasal septum deviation [Unknown]
  - Eustachian tube dysfunction [Unknown]
  - Tympanic membrane perforation [Unknown]
  - Cerumen impaction [Unknown]
  - Hypersensitivity [Unknown]
  - Ear haemorrhage [Unknown]
  - Rhinorrhoea [Unknown]
  - Otitis externa [Recovered/Resolved]
  - Otorrhoea [Unknown]
  - Inappropriate schedule of product administration [Unknown]
  - Off label use [Unknown]

NARRATIVE: CASE EVENT DATE: 20230221
